FAERS Safety Report 17139332 (Version 1)
Quarter: 2019Q4

REPORT INFORMATION
  Report Type: Spontaneous
  Country: SE (occurrence: SE)
  Receive Date: 20191211
  Receipt Date: 20191211
  Transmission Date: 20200122
  Serious: Yes (Hospitalization)
  Sender: FDA-Public Use
  Company Number: SE-TEVA-2019-SE-1148652

PATIENT
  Age: 42 Year
  Sex: Female

DRUGS (2)
  1. LERGIGAN (PROMETHAZINE HYDROCHLORIDE) [Suspect]
     Active Substance: PROMETHAZINE HYDROCHLORIDE
     Dosage: 80 PCS, ABOUT 2 GRAMS
     Route: 048
     Dates: start: 20180901, end: 20180901
  2. STESOLID [Suspect]
     Active Substance: DIAZEPAM
     Dosage: 8 ST STESOLID
     Route: 048
     Dates: start: 20180901, end: 20180901

REACTIONS (2)
  - Intentional self-injury [Unknown]
  - Intentional overdose [Unknown]

NARRATIVE: CASE EVENT DATE: 20180901
